FAERS Safety Report 6196730-4 (Version None)
Quarter: 2009Q2

REPORT INFORMATION
  Report Type: 
  Country: None (occurrence: None)
  Receive Date: 20090520
  Receipt Date: 20090514
  Transmission Date: 20091009
  Serious: Yes (Hospitalization)
  Sender: FDA-Public Use
  Company Number: US-MERCK-0905USA01869

PATIENT
  Sex: Male

DRUGS (2)
  1. JANUVIA [Suspect]
     Indication: BLOOD GLUCOSE ABNORMAL
     Route: 048
     Dates: start: 20090201, end: 20090201
  2. JANUVIA [Suspect]
     Route: 048
     Dates: start: 20090323, end: 20090101

REACTIONS (2)
  - LIMB DISCOMFORT [None]
  - SKIN DISCOLOURATION [None]
